FAERS Safety Report 8109683-6 (Version None)
Quarter: 2012Q1

REPORT INFORMATION
  Report Type: 
  Country: None (occurrence: None)
  Receive Date: 20120202
  Receipt Date: 20120119
  Transmission Date: 20120608
  Serious: Yes (Other)
  Sender: FDA-Public Use
  Company Number: AU-WATSON-2011-05888

PATIENT
  Sex: Female

DRUGS (2)
  1. TRELSTAR [Suspect]
     Indication: BREAST CANCER
     Dosage: 3.75 MG ONCE A MONTH
     Route: 030
     Dates: start: 20061102
  2. EXEMESTANE [Concomitant]
     Indication: BREAST CANCER
     Dosage: UNK
     Dates: start: 20061229

REACTIONS (3)
  - HAND FRACTURE [None]
  - BONE DENSITY ABNORMAL [None]
  - FALL [None]
